FAERS Safety Report 6169865-X (Version None)
Quarter: 2009Q2

REPORT INFORMATION
  Report Type: 
  Country: None (occurrence: None)
  Receive Date: 20090428
  Receipt Date: 20090421
  Transmission Date: 20091009
  Serious: Yes (Death, Other)
  Sender: FDA-Public Use
  Company Number: GR-CELGENEUS-066-21880-09042090

PATIENT

DRUGS (6)
  1. REVLIMID [Suspect]
     Indication: AMYLOIDOSIS
     Dosage: LEVEL 0-1: 10MG, LEVEL 2: 15MG, LEVEL 3: 20MG, LEVEL 4: 25MG
     Route: 048
  2. REVLIMID [Suspect]
     Route: 048
  3. REVLIMID [Suspect]
     Route: 048
  4. DEXAMETHASONE [Suspect]
     Indication: AMYLOIDOSIS
     Route: 065
  5. CYCLOPHOSPHAMIDE [Suspect]
     Indication: AMYLOIDOSIS
     Dosage: LEVEL 0: 50MG, LEVEL 1-4: 100MG
     Route: 065
  6. ASPIRIN [Concomitant]
     Route: 065

REACTIONS (9)
  - AMYLOIDOSIS [None]
  - DEEP VEIN THROMBOSIS [None]
  - DIARRHOEA [None]
  - FATIGUE [None]
  - INFECTION [None]
  - NEUTROPENIA [None]
  - RASH [None]
  - RENAL IMPAIRMENT [None]
  - THROMBOCYTOPENIA [None]
